FAERS Safety Report 12697277 (Version 1)
Quarter: 2016Q3

REPORT INFORMATION
  Report Type: Spontaneous
  Country: US (occurrence: None)
  Receive Date: 20160829
  Receipt Date: 20160829
  Transmission Date: 20161109
  Serious: Yes (Hospitalization)
  Sender: FDA-Public Use
  Company Number: None

PATIENT
  Age: 81 Year
  Sex: Male
  Weight: 59.9 kg

DRUGS (18)
  1. CELEXA [Concomitant]
     Active Substance: CITALOPRAM HYDROBROMIDE
  2. COUMADIN [Concomitant]
     Active Substance: WARFARIN SODIUM
  3. ADVAIR DISKUS [Concomitant]
     Active Substance: FLUTICASONE PROPIONATE\SALMETEROL XINAFOATE
  4. LIPITOR [Concomitant]
     Active Substance: ATORVASTATIN CALCIUM
  5. VITAMIN D [Concomitant]
     Active Substance: CHOLECALCIFEROL
  6. WARFARIN, 2.5MG [Suspect]
     Active Substance: WARFARIN
     Indication: ATRIAL FIBRILLATION
     Route: 048
  7. LOSARTAN (COZAAR) [Concomitant]
  8. DOCUSATE SODIUM (COLACE, DULCOLAX) [Concomitant]
  9. POTASSIUM CHLORIDE SA (K-DUR;KLOR-CON M) [Concomitant]
  10. DRONABINOL (MARINOL PO) [Concomitant]
  11. MULTIVITAMIN (THERAGRAN) [Concomitant]
  12. MINERAL OIL (KONDREMUL) [Concomitant]
  13. CARVEDILOL (COREG) [Concomitant]
  14. ZEMPLAR [Concomitant]
     Active Substance: PARICALCITOL
  15. TRAMADOL (ULTRAM) [Concomitant]
  16. ALBUTEROL SULFATE HFA (PROAIR HFA) [Concomitant]
  17. LASIX [Concomitant]
     Active Substance: FUROSEMIDE
  18. SPIRIVA [Concomitant]
     Active Substance: TIOTROPIUM BROMIDE MONOHYDRATE

REACTIONS (6)
  - Haemoglobin decreased [None]
  - Dizziness [None]
  - Fall [None]
  - Chest wall haematoma [None]
  - Contusion [None]
  - Dyspnoea [None]

NARRATIVE: CASE EVENT DATE: 20160808
